FAERS Safety Report 6808245-8 (Version None)
Quarter: 2010Q2

REPORT INFORMATION
  Report Type: 
  Country: None (occurrence: None)
  Receive Date: 20100629
  Receipt Date: 20090601
  Transmission Date: 20101027
  Serious: No
  Sender: FDA-Public Use
  Company Number: US-PFIZER INC-2009192794

PATIENT
  Age: 59 Year
  Sex: Female

DRUGS (4)
  1. XANAX [Suspect]
     Dosage: UNK
  2. ZOLPIDEM TARTRATE [Suspect]
     Dosage: 10 MG, UNK
     Route: 048
     Dates: start: 20080101
  3. VALIUM [Suspect]
     Indication: DEPRESSION
     Dosage: UNK
  4. HYDROCODONE [Suspect]
     Indication: PAIN

REACTIONS (1)
  - DRUG DEPENDENCE [None]
